FAERS Safety Report 21246887 (Version 1)
Quarter: 2022Q3

REPORT INFORMATION
  Report Type: Spontaneous
  Country: CA (occurrence: CA)
  Receive Date: 20220824
  Receipt Date: 20220824
  Transmission Date: 20221027
  Serious: Yes (Other)
  Sender: FDA-Public Use
  Company Number: None

PATIENT
  Age: 53 Year
  Sex: Male

DRUGS (5)
  1. METHOTREXATE [Suspect]
     Active Substance: METHOTREXATE
     Indication: Rheumatoid arthritis
     Dosage: 1 EVERY 1 WEEKS
     Route: 048
  2. ALLOPURINOL [Concomitant]
     Active Substance: ALLOPURINOL
  3. DOXYCYCLINE [Concomitant]
     Active Substance: DOXYCYCLINE
  4. FOLIC ACID [Concomitant]
     Active Substance: FOLIC ACID
  5. NIVOLUMAB [Concomitant]
     Active Substance: NIVOLUMAB
     Dosage: SOLUTION INTRAVENOUS

REACTIONS (2)
  - Cataract [Not Recovered/Not Resolved]
  - Metastatic renal cell carcinoma [Not Recovered/Not Resolved]
